FAERS Safety Report 18902560 (Version 1)
Quarter: 2021Q1

REPORT INFORMATION
  Report Type: Spontaneous
  Country: US (occurrence: US)
  Receive Date: 20210217
  Receipt Date: 20210217
  Transmission Date: 20210420
  Serious: Yes (Other)
  Sender: FDA-Public Use
  Company Number: NVSC2021US026405

PATIENT
  Sex: Female

DRUGS (1)
  1. ZOLGENSMA [Suspect]
     Active Substance: ONASEMNOGENE ABEPARVOVEC-XIOI
     Indication: SPINAL MUSCULAR ATROPHY
     Dosage: UNK, ONCE/SINGLE
     Route: 042

REACTIONS (5)
  - Liver function test abnormal [Recovering/Resolving]
  - Liver tenderness [Recovering/Resolving]
  - Vasculitic rash [Recovering/Resolving]
  - Thrombotic microangiopathy [Recovering/Resolving]
  - Transaminases increased [Recovering/Resolving]
